FAERS Safety Report 9301738 (Version 1)
Quarter: 2012Q4

REPORT INFORMATION
  Report Type: Spontaneous
  Country: US (occurrence: None)
  Receive Date: 20121109
  Receipt Date: 20121109
  Transmission Date: 20130627
  Serious: Yes (Other)
  Sender: FDA-Public Use
  Company Number: 2011S1000917

PATIENT
  Age: 56 Year
  Sex: Male

DRUGS (4)
  1. CUBICIN [Suspect]
     Indication: METHICILLIN-RESISTANT STAPHYLOCOCCAL AUREUS INFECTION
     Route: 042
     Dates: start: 20110421, end: 20110425
  2. ALL OTHER THERAPEUTIC PRODUCTS [Concomitant]
  3. HYDROCODONE [Concomitant]
  4. OMEPRAZOLE [Concomitant]

REACTIONS (2)
  - Insulin C-peptide increased [None]
  - Hypoglycaemia [None]
